FAERS Safety Report 13567706 (Version 1)
Quarter: 2017Q2

REPORT INFORMATION
  Report Type: Spontaneous
  Country: US (occurrence: US)
  Receive Date: 20170522
  Receipt Date: 20170522
  Transmission Date: 20170830
  Serious: Yes (Hospitalization, Other)
  Sender: FDA-Public Use
  Company Number: US-UCBSA-2017019082

PATIENT
  Age: 62 Year
  Sex: Male

DRUGS (3)
  1. LEVETIRACETAM. [Suspect]
     Active Substance: LEVETIRACETAM
     Indication: SEIZURE
     Dosage: UNKNOWN DOSE
  2. RISPERIDONE. [Concomitant]
     Active Substance: RISPERIDONE
     Indication: DELIRIUM
     Dosage: UNKNOWN DOSE
  3. LORAZEPAM. [Concomitant]
     Active Substance: LORAZEPAM
     Indication: SEIZURE
     Dosage: UNKNOWN DOSE

REACTIONS (1)
  - Status epilepticus [Unknown]
